FAERS Safety Report 4306358-6 (Version None)
Quarter: 2004Q1

REPORT INFORMATION
  Report Type: 
  Country: None (occurrence: None)
  Receive Date: 20040225
  Receipt Date: 20030603
  Transmission Date: 20041129
  Serious: No
  Sender: FDA-Public Use
  Company Number: US-BRISTOL-MYERS SQUIBB COMPANY-12300893

PATIENT
  Age: 72 Year
  Sex: Female
  Weight: 59 kg

DRUGS (1)
  1. EXCEDRIN (MIGRAINE) [Suspect]
     Indication: PAIN IN EXTREMITY
     Dosage: DOSE VALUE: 1 EVERY 4 OR 6 HOURS. DURATION OF THERAPY^  SEVERAL WEEKS
     Route: 048

REACTIONS (1)
  - DRUG INEFFECTIVE [None]
